FAERS Safety Report 7077549-9 (Version None)
Quarter: 2010Q4

REPORT INFORMATION
  Report Type: 
  Country: None (occurrence: None)
  Receive Date: 20101101
  Receipt Date: 20101019
  Transmission Date: 20110411
  Serious: Yes (Hospitalization)
  Sender: FDA-Public Use
  Company Number: DE-PFIZER INC-2010138552

PATIENT
  Age: 85 Year
  Sex: Female

DRUGS (12)
  1. SORTIS [Suspect]
     Dosage: UNK
     Dates: start: 20090622
  2. IBUPROFEN [Suspect]
  3. ARICEPT [Suspect]
     Dosage: UNK
     Dates: start: 20080501
  4. BLINDED THERAPY [Suspect]
     Indication: THROMBOSIS PROPHYLAXIS
     Dosage: UNK
     Route: 048
     Dates: start: 20090417
  5. NEXIUM [Suspect]
  6. COAPROVEL [Suspect]
     Dosage: UNK
     Dates: start: 20090401
  7. FOSAVANCE [Suspect]
     Dosage: UNK
     Dates: start: 20070701
  8. METAMIZOLE SODIUM [Suspect]
     Dosage: UNK
     Dates: start: 20090401
  9. CYMBALTA [Suspect]
     Dosage: UNK
     Dates: start: 20081101
  10. AGGRENOX [Suspect]
     Dosage: UNK
     Dates: start: 20090416
  11. ZOPICLONE [Concomitant]
     Dosage: UNK
     Dates: start: 20080501
  12. MIRTAZAPINE [Concomitant]
     Dosage: UNK
     Dates: start: 20080501

REACTIONS (1)
  - HYPOCHROMIC ANAEMIA [None]
